FAERS Safety Report 12391498 (Version 1)
Quarter: 2016Q2

REPORT INFORMATION
  Report Type: Spontaneous
  Country: GB (occurrence: GB)
  Receive Date: 20160521
  Receipt Date: 20160521
  Transmission Date: 20160815
  Serious: Yes (Other)
  Sender: FDA-Public Use
  Company Number: GB-ACCORD-040620

PATIENT
  Age: 56 Year
  Sex: Male

DRUGS (5)
  1. METHOTREXATE [Suspect]
     Active Substance: METHOTREXATE
     Indication: RHEUMATOID ARTHRITIS
     Dosage: ON MONDAY
     Route: 048
     Dates: start: 20160311
  2. NAPROXEN. [Concomitant]
     Active Substance: NAPROXEN
  3. FOLATE SODIUM/FOLIC ACID [Concomitant]
     Indication: ARTHRITIS
     Dosage: ON WEDNESDAY
     Dates: start: 20160311
  4. PARACETAMOL [Concomitant]
     Active Substance: ACETAMINOPHEN
     Dosage: 500 MG -1G, FOUR TIMES A DAY
  5. SULFASALAZINE. [Concomitant]
     Active Substance: SULFASALAZINE

REACTIONS (5)
  - Rhinorrhoea [Unknown]
  - Pain [Unknown]
  - Pyrexia [Recovered/Resolved]
  - Influenza like illness [Unknown]
  - Neck pain [Unknown]

NARRATIVE: CASE EVENT DATE: 20160311
